FAERS Safety Report 4567647-3 (Version None)
Quarter: 2005Q1

REPORT INFORMATION
  Report Type: 
  Country: None (occurrence: None)
  Receive Date: 20050110
  Receipt Date: 20050110
  Transmission Date: 20050727
  Serious: No
  Sender: FDA-Public Use
  Company Number: None

PATIENT
  Age: 96 Year
  Sex: Female
  Weight: 56.6996 kg

DRUGS (4)
  1. VASOTEC [Suspect]
     Indication: HYPERTENSION
     Dosage: 10 MG PO QD
     Route: 048
     Dates: start: 20020301, end: 20020401
  2. VASOTEC [Concomitant]
  3. FURSOMIDE [Concomitant]
  4. DIFLUSINOL [Concomitant]

REACTIONS (1)
  - PALPITATIONS [None]
